FAERS Safety Report 24260529 (Version 1)
Quarter: 2024Q3

REPORT INFORMATION
  Report Type: Report from Study
  Country: HN (occurrence: HN)
  Receive Date: 20240828
  Receipt Date: 20240828
  Transmission Date: 20241016
  Serious: Yes (Other)
  Sender: MYLAN
  Company Number: HN-MYLANLABS-2024M1079077

PATIENT
  Sex: Male
  Weight: 61.23 kg

DRUGS (1)
  1. LIPITOR [Suspect]
     Active Substance: ATORVASTATIN CALCIUM
     Indication: Product used for unknown indication
     Dosage: 40 MILLIGRAM, QD (1 TABLET DAILY)
     Route: 048

REACTIONS (3)
  - Myocardial infarction [Unknown]
  - Hypertension [Unknown]
  - Malaise [Unknown]
